FAERS Safety Report 13642663 (Version 1)
Quarter: 2017Q2

REPORT INFORMATION
  Report Type: Spontaneous
  Country: JP (occurrence: JP)
  Receive Date: 20170612
  Receipt Date: 20170612
  Transmission Date: 20170830
  Serious: Yes (Hospitalization)
  Sender: FDA-Public Use
  Company Number: JP-INGENUS PHARMACEUTICALS NJ, LLC-ING201706-000291

PATIENT
  Age: 80 Year
  Sex: Male

DRUGS (4)
  1. PRASUGREL. [Suspect]
     Active Substance: PRASUGREL
     Indication: ANTIPLATELET THERAPY
  2. WARFARIN [Suspect]
     Active Substance: WARFARIN
  3. WARFARIN [Suspect]
     Active Substance: WARFARIN
  4. CARISOPRODOL AND ASPIRIN [Suspect]
     Active Substance: ASPIRIN\CARISOPRODOL
     Indication: ANTIPLATELET THERAPY

REACTIONS (3)
  - Vascular pseudoaneurysm [Recovering/Resolving]
  - Ulcer [Unknown]
  - Haemorrhage [Recovered/Resolved]
